FAERS Safety Report 9163419 (Version 3)
Quarter: 2013Q2

REPORT INFORMATION
  Report Type: Report from Study
  Country: US (occurrence: US)
  Receive Date: 20130314
  Receipt Date: 20130613
  Transmission Date: 20140414
  Serious: Yes (Disabling)
  Sender: FDA-Public Use
  Company Number: US-JNJFOC-20130302383

PATIENT
  Age: 16 Year
  Sex: Female
  Weight: 46 kg

DRUGS (10)
  1. REMICADE [Suspect]
     Indication: INFLAMMATORY BOWEL DISEASE
     Route: 042
     Dates: end: 20110227
  2. REMICADE [Suspect]
     Indication: INFLAMMATORY BOWEL DISEASE
     Route: 042
     Dates: start: 200910
  3. HUMIRA [Suspect]
     Indication: INFLAMMATORY BOWEL DISEASE
     Route: 065
     Dates: start: 20111215
  4. PREDNISONE [Concomitant]
     Route: 065
  5. ANTIBIOTICS [Concomitant]
     Indication: INFLAMMATORY BOWEL DISEASE
     Route: 065
  6. ZOLOFT [Concomitant]
     Route: 065
  7. STRATTERA [Concomitant]
     Route: 065
  8. TYLENOL [Concomitant]
     Route: 065
  9. OMNICEF [Concomitant]
     Route: 065
  10. NEXIUM [Concomitant]
     Route: 065

REACTIONS (1)
  - Psoriasis [Recovered/Resolved]
